FAERS Safety Report 25064327 (Version 1)
Quarter: 2025Q1

REPORT INFORMATION
  Report Type: Spontaneous
  Country: US (occurrence: US)
  Receive Date: 20250311
  Receipt Date: 20250311
  Transmission Date: 20250409
  Serious: No
  Sender: ODIN PHARMACEUTICALS
  Company Number: USA--2024-US-000249

PATIENT
  Age: 83 Year
  Sex: Male

DRUGS (6)
  1. LATANOPROST [Suspect]
     Active Substance: LATANOPROST
     Dates: start: 20240328, end: 20240331
  2. LEVOTHYROXINE [Concomitant]
     Active Substance: LEVOTHYROXINE
  3. TAMSULOSIN [Concomitant]
     Active Substance: TAMSULOSIN
     Route: 048
  4. AMLODIPINE [Concomitant]
     Active Substance: AMLODIPINE BESYLATE
     Route: 048
  5. LOSARTAN [Concomitant]
     Active Substance: LOSARTAN
     Route: 048
  6. CLOPIDOGREL [Concomitant]
     Active Substance: CLOPIDOGREL BISULFATE
     Route: 048

REACTIONS (4)
  - Dry mouth [Recovering/Resolving]
  - Tooth disorder [Recovering/Resolving]
  - Oral pain [Recovering/Resolving]
  - Facial pain [Recovered/Resolved]

NARRATIVE: CASE EVENT DATE: 20240328
